FAERS Safety Report 25316582 (Version 1)
Quarter: 2025Q2

REPORT INFORMATION
  Report Type: Spontaneous
  Country: US (occurrence: US)
  Receive Date: 20250515
  Receipt Date: 20250515
  Transmission Date: 20250717
  Serious: Yes (Other)
  Sender: COOPERSURGICAL
  Company Number: US-COOPERSURGICAL, INC.-2025CPS003836

PATIENT
  Age: 41 Year
  Sex: Female
  Weight: 86.168 kg

DRUGS (1)
  1. PARAGARD T 380A [Suspect]
     Active Substance: COPPER
     Indication: Contraception
     Route: 015
     Dates: start: 20090424, end: 20181026

REACTIONS (7)
  - Salpingectomy [Recovered/Resolved]
  - Device breakage [Recovered/Resolved]
  - Complication of device removal [Recovered/Resolved]
  - Procedural haemorrhage [Recovered/Resolved]
  - Procedural pain [Recovered/Resolved]
  - Emotional disorder [Unknown]
  - Pain [Unknown]

NARRATIVE: CASE EVENT DATE: 20181026
